FAERS Safety Report 5055651-0 (Version None)
Quarter: 2006Q3

REPORT INFORMATION
  Report Type: 
  Country: None (occurrence: None)
  Receive Date: 20060714
  Receipt Date: 20060628
  Transmission Date: 20061208
  Serious: Yes (Hospitalization)
  Sender: FDA-Public Use
  Company Number: US-2006-010630

PATIENT
  Age: 63 Year
  Sex: Female
  Weight: 71 kg

DRUGS (18)
  1. FLUDARA [Suspect]
     Indication: CHRONIC LYMPHOCYTIC LEUKAEMIA
     Dosage: 25 MG/M2, D2, 3, 4, INTRAVENOUS
     Route: 042
     Dates: start: 20060314, end: 20060316
  2. RITUXAN [Suspect]
     Indication: CHRONIC LYMPHOCYTIC LEUKAEMIA
     Dosage: 375 MG/M2 D1, INTRAVENOUS
     Route: 042
     Dates: start: 20060313, end: 20060313
  3. CYTOXAN [Suspect]
     Indication: CHRONIC LYMPHOCYTIC LEUKAEMIA
     Dosage: 250 MG/M2, D2, 3, 4, INTRAVENOUS
     Route: 042
     Dates: start: 20060314, end: 20060316
  4. NEURONTIN [Concomitant]
  5. FENTANYL [Concomitant]
  6. SENOKOT (SENNA ALEXANDRINA FRUIT) [Concomitant]
  7. HYDROCHLORIDE                     (HYDROCODONE) [Concomitant]
  8. POLYGAM (IMMUNOGLOBULIN HUMAN NORMAL) [Concomitant]
  9. INSULIN [Concomitant]
  10. BACTRIM [Concomitant]
  11. VALTREX [Concomitant]
  12. CARDURA /IRE/ (DOXAZOSIN MESILATE) [Concomitant]
  13. LIPITOR /NET/ (ATORVASTATIN CALCIUM) [Concomitant]
  14. DIOVAN [Concomitant]
  15. VASOTEC [Concomitant]
  16. NORVASC [Concomitant]
  17. ALLOPURINOL [Concomitant]
  18. METAMUCIL                                   (PLANTAGO OVATA) [Concomitant]

REACTIONS (29)
  - AORTIC STENOSIS [None]
  - BACK PAIN [None]
  - BAND NEUTROPHIL COUNT INCREASED [None]
  - CARPAL TUNNEL SYNDROME [None]
  - CEREBRAL ATROPHY [None]
  - CEREBRAL DISORDER [None]
  - COUGH [None]
  - CREPITATIONS [None]
  - CSF GLUCOSE INCREASED [None]
  - CYTOMEGALOVIRUS ANTIBODY POSITIVE [None]
  - DEHYDRATION [None]
  - DIARRHOEA [None]
  - DIASTOLIC DYSFUNCTION [None]
  - ELECTROCARDIOGRAM QT PROLONGED [None]
  - HYPERGLYCAEMIA [None]
  - HYPERHIDROSIS [None]
  - MITRAL VALVE INCOMPETENCE [None]
  - NAUSEA [None]
  - NECK PAIN [None]
  - OEDEMA PERIPHERAL [None]
  - PAIN IN EXTREMITY [None]
  - PYREXIA [None]
  - RASH [None]
  - TACHYCARDIA [None]
  - TRICUSPID VALVE INCOMPETENCE [None]
  - URINE ODOUR ABNORMAL [None]
  - VENTRICULAR DYSFUNCTION [None]
  - VOMITING [None]
  - WHITE BLOOD CELL COUNT DECREASED [None]
